FAERS Safety Report 5413452-5 (Version None)
Quarter: 2007Q3

REPORT INFORMATION
  Report Type: 
  Country: None (occurrence: None)
  Receive Date: 20070809
  Receipt Date: 20070809
  Transmission Date: 20080115
  Serious: Yes (Other)
  Sender: FDA-Public Use
  Company Number: None

PATIENT
  Age: 53 Year
  Sex: Female
  Weight: 59.4212 kg

DRUGS (1)
  1. SUBOXONE [Suspect]
     Indication: DRUG DEPENDENCE
     Dosage: 4MG BID SL
     Route: 060
     Dates: start: 20070508, end: 20070720

REACTIONS (6)
  - CARPAL TUNNEL SYNDROME [None]
  - CONSTIPATION [None]
  - HYPOAESTHESIA [None]
  - JOINT SWELLING [None]
  - WEIGHT DECREASED [None]
  - WEIGHT INCREASED [None]
